FAERS Safety Report 16643121 (Version 5)
Quarter: 2024Q4

REPORT INFORMATION
  Report Type: Spontaneous
  Country: IN (occurrence: IN)
  Receive Date: 20190729
  Receipt Date: 20241017
  Transmission Date: 20250115
  Serious: Yes (Other)
  Sender: PFIZER
  Company Number: IN-PFIZER INC-2018292188

PATIENT
  Age: 54 Year
  Sex: Female

DRUGS (2)
  1. AROMASIN [Suspect]
     Active Substance: EXEMESTANE
     Indication: Breast cancer metastatic
     Dosage: 25 MG, DAILY
     Route: 048
     Dates: start: 20180104
  2. DENOSUMAB [Concomitant]
     Active Substance: DENOSUMAB
     Dosage: 60 MG

REACTIONS (5)
  - Second primary malignancy [Unknown]
  - Thyroid cancer [Unknown]
  - Rheumatoid arthritis [Unknown]
  - Arthritis [Unknown]
  - Osteoporosis [Unknown]

NARRATIVE: CASE EVENT DATE: 20230101
